FAERS Safety Report 5807114-X (Version None)
Quarter: 2008Q3

REPORT INFORMATION
  Report Type: 
  Country: None (occurrence: None)
  Receive Date: 20080711
  Receipt Date: 20080702
  Transmission Date: 20090109
  Serious: Yes (Hospitalization, Disabling)
  Sender: FDA-Public Use
  Company Number: FR-BAYER-200821634GPV

PATIENT
  Age: 30 Year
  Sex: Male
  Weight: 52 kg

DRUGS (6)
  1. IZILOX [Suspect]
     Indication: DRUG USE FOR UNKNOWN INDICATION
     Dosage: TOTAL DAILY DOSE: 400 MG  UNIT DOSE: 400 MG
     Route: 048
     Dates: start: 20071111
  2. ZYVOXID [Suspect]
     Indication: DRUG USE FOR UNKNOWN INDICATION
     Route: 048
     Dates: start: 20071111, end: 20080320
  3. ZYVOXID [Suspect]
     Route: 048
     Dates: start: 20080321, end: 20080401
  4. CYCLOSERINE [Suspect]
     Indication: DRUG USE FOR UNKNOWN INDICATION
     Dosage: UNIT DOSE: 750 MG
     Route: 048
     Dates: start: 20071120, end: 20080502
  5. AMIKACIN [Suspect]
     Indication: DRUG USE FOR UNKNOWN INDICATION
     Route: 042
     Dates: start: 20071111
  6. P.A.S. [Suspect]
     Indication: DRUG USE FOR UNKNOWN INDICATION
     Route: 048
     Dates: start: 20071111

REACTIONS (4)
  - DYSAESTHESIA [None]
  - DYSURIA [None]
  - PAIN IN EXTREMITY [None]
  - POLYNEUROPATHY [None]
